FAERS Safety Report 13651933 (Version 1)
Quarter: 2017Q2

REPORT INFORMATION
  Report Type: Spontaneous
  Country: FR (occurrence: FR)
  Receive Date: 20170614
  Receipt Date: 20170614
  Transmission Date: 20170830
  Serious: Yes (Hospitalization)
  Sender: FDA-Public Use
  Company Number: FR-ASTRAZENECA-2017SE61100

PATIENT
  Age: 18939 Day
  Sex: Female

DRUGS (7)
  1. SOLUPRED [Concomitant]
     Active Substance: PREDNISOLONE
  2. LYNPARZA [Suspect]
     Active Substance: OLAPARIB
     Indication: OVARIAN CANCER
     Dosage: HALVED DAILY DOSE
     Route: 048
  3. DEBRIDAT [Concomitant]
     Active Substance: TRIMEBUTINE MALEATE
  4. LYNPARZA [Suspect]
     Active Substance: OLAPARIB
     Indication: OVARIAN CANCER
     Route: 048
     Dates: start: 20170311, end: 20170311
  5. EUPANTOL [Concomitant]
     Active Substance: PANTOPRAZOLE SODIUM
  6. SPECIAFOLDINE [Concomitant]
     Active Substance: FOLIC ACID
  7. OXYCONTIN [Concomitant]
     Active Substance: OXYCODONE HYDROCHLORIDE

REACTIONS (3)
  - Face oedema [Recovered/Resolved]
  - Eyelid oedema [Recovered/Resolved]
  - Rash maculo-papular [Recovered/Resolved]

NARRATIVE: CASE EVENT DATE: 20170311
